FAERS Safety Report 9948396 (Version 1)
Quarter: 2014Q1

REPORT INFORMATION
  Report Type: Report from Study
  Country: US (occurrence: US)
  Receive Date: 20140303
  Receipt Date: 20140303
  Transmission Date: 20141002
  Serious: No
  Sender: FDA-Public Use
  Company Number: US-ABBVIE-13P-163-1057283-00

PATIENT
  Age: 40 Year
  Sex: Female

DRUGS (4)
  1. HUMIRA [Suspect]
     Route: 058
     Dates: start: 2011, end: 2011
  2. HUMIRA [Suspect]
     Indication: PSORIASIS
     Route: 058
     Dates: start: 201301, end: 201301
  3. HUMIRA [Suspect]
     Dosage: ON DAY 8
     Route: 058
  4. HUMIRA [Suspect]
     Route: 058

REACTIONS (2)
  - Psoriasis [Recovering/Resolving]
  - Injection site pain [Recovering/Resolving]
